FAERS Safety Report 5294504-X (Version None)
Quarter: 2007Q2

REPORT INFORMATION
  Report Type: 
  Country: None (occurrence: None)
  Receive Date: 20070406
  Receipt Date: 20070326
  Transmission Date: 20071010
  Serious: Yes (Hospitalization)
  Sender: FDA-Public Use
  Company Number: CERZ-11586

PATIENT
  Age: 20 Year
  Sex: Male
  Weight: 70.3075 kg

DRUGS (2)
  1. CEREZYME [Suspect]
     Indication: GAUCHER'S DISEASE
     Dates: start: 19970610
  2. ADDERALL 10 [Concomitant]

REACTIONS (8)
  - ABDOMINAL DISTENSION [None]
  - BONE PAIN [None]
  - FATIGUE [None]
  - IMPRISONMENT [None]
  - LETHARGY [None]
  - MENTAL DISORDER [None]
  - SPLENOMEGALY [None]
  - VICTIM OF ABUSE [None]
